FAERS Safety Report 5049347-9 (Version None)
Quarter: 2006Q3

REPORT INFORMATION
  Report Type: 
  Country: None (occurrence: None)
  Receive Date: 20060712
  Receipt Date: 20060619
  Transmission Date: 20061208
  Serious: Yes (Life-Threatening, Hospitalization)
  Sender: FDA-Public Use
  Company Number: CA-GLAXOSMITHKLINE-A0609613A

PATIENT
  Age: 62 Year
  Sex: Female

DRUGS (7)
  1. AVANDIA [Suspect]
     Dosage: 4MG AT NIGHT
     Route: 048
  2. ADALAT [Concomitant]
     Dosage: 60MG PER DAY
     Route: 048
  3. METOPROLOL TARTRATE [Concomitant]
     Dosage: 100MG PER DAY
     Route: 048
  4. LISINOPRIL [Concomitant]
     Dosage: 20MG PER DAY
     Route: 048
  5. ASPIRIN [Concomitant]
     Dosage: 81MG PER DAY
     Route: 048
  6. GLICLAZIDE [Concomitant]
     Dosage: 80MG TWICE PER DAY
     Route: 048
  7. METFORMIN [Concomitant]
     Dosage: 850MG THREE TIMES PER DAY
     Route: 048

REACTIONS (2)
  - MYOCARDIAL INFARCTION [None]
  - VASCULAR BYPASS GRAFT [None]
